FAERS Safety Report 12194086 (Version 1)
Quarter: 2016Q1

REPORT INFORMATION
  Report Type: Spontaneous
  Country: DE (occurrence: DE)
  Receive Date: 20160321
  Receipt Date: 20160321
  Transmission Date: 20160526
  Serious: Yes (Hospitalization)
  Sender: FDA-Public Use
  Company Number: DE-009507513-1603DEU007072

PATIENT
  Age: 38 Year
  Sex: Female

DRUGS (1)
  1. NUVARING [Suspect]
     Active Substance: ETHINYL ESTRADIOL\ETONOGESTREL
     Indication: CONTRACEPTION
     Dosage: DOSE REPORTED AS 1 RING
     Route: 067
     Dates: start: 20160112

REACTIONS (3)
  - Venous thrombosis [Unknown]
  - Cerebral infarction [Unknown]
  - Partial seizures [Unknown]

NARRATIVE: CASE EVENT DATE: 20160126
